FAERS Safety Report 5261315-0 (Version None)
Quarter: 2007Q1

REPORT INFORMATION
  Report Type: 
  Country: None (occurrence: None)
  Receive Date: 20070307
  Receipt Date: 20070220
  Transmission Date: 20070707
  Serious: Yes (Death)
  Sender: FDA-Public Use
  Company Number: 2006BI018440

PATIENT
  Sex: Male

DRUGS (6)
  1. AVONEX [Suspect]
     Indication: MULTIPLE SCLEROSIS
     Dosage: ; IM
     Route: 030
     Dates: start: 20050429, end: 20051101
  2. DIOVAN [Concomitant]
  3. NORVASC [Concomitant]
  4. AMARYL [Concomitant]
  5. ASPIRIN [Concomitant]
  6. PLAVIX [Concomitant]

REACTIONS (1)
  - RENAL FAILURE CHRONIC [None]
